FAERS Safety Report 21178471 (Version 1)
Quarter: 2022Q3

REPORT INFORMATION
  Report Type: Spontaneous
  Country: CA (occurrence: None)
  Receive Date: 20220805
  Receipt Date: 20220805
  Transmission Date: 20221027
  Serious: Yes (Other)
  Sender: FDA-Public Use
  Company Number: None

PATIENT
  Age: 63 Year
  Sex: Female
  Weight: 60.75 kg

DRUGS (4)
  1. ULTRAM [Suspect]
     Active Substance: TRAMADOL HYDROCHLORIDE
     Indication: Postoperative analgesia
     Dosage: OTHER QUANTITY : 2 TABLET(S);?FREQUENCY : EVERY 4 HOURS;?
     Route: 048
     Dates: start: 20180818, end: 20180821
  2. HRT (Estrogel and Teva-Progesterone) [Concomitant]
  3. Cod liver oil pills [Concomitant]
  4. glucosamine  AND MSM [Concomitant]

REACTIONS (6)
  - Paralysis [None]
  - Dizziness [None]
  - Hallucination [None]
  - Nausea [None]
  - Tremor [None]
  - Vomiting [None]

NARRATIVE: CASE EVENT DATE: 20180821
